FAERS Safety Report 11979671 (Version 2)
Quarter: 2016Q2

REPORT INFORMATION
  Report Type: Report from Study
  Country: VE (occurrence: VE)
  Receive Date: 20160129
  Receipt Date: 20160429
  Transmission Date: 20160815
  Serious: Yes (Death)
  Sender: FDA-Public Use
  Company Number: VE-ABBVIE-16P-178-1548254-00

PATIENT
  Age: 76 Year
  Sex: Male

DRUGS (3)
  1. ZEMPLAR [Suspect]
     Active Substance: PARICALCITOL
     Indication: NEPHROPATHY
     Route: 042
     Dates: start: 200807, end: 20151017
  2. FOLIC ACID. [Concomitant]
     Active Substance: FOLIC ACID
     Indication: PRODUCT USED FOR UNKNOWN INDICATION
     Route: 065
  3. VITAMIN B NOS [Concomitant]
     Active Substance: VITAMIN B
     Indication: PRODUCT USED FOR UNKNOWN INDICATION
     Route: 065

REACTIONS (1)
  - Respiratory tract infection [Fatal]

NARRATIVE: CASE EVENT DATE: 20151024
